FAERS Safety Report 5314331-4 (Version None)
Quarter: 2007Q2

REPORT INFORMATION
  Report Type: 
  Country: None (occurrence: None)
  Receive Date: 20070502
  Receipt Date: 20070423
  Transmission Date: 20071010
  Serious: Yes (Other)
  Sender: FDA-Public Use
  Company Number: ZA-JNJFOC-20070401786

PATIENT
  Age: 33 Year
  Sex: Female

DRUGS (3)
  1. TAVANIC [Suspect]
     Indication: SINUSITIS
     Route: 048
  2. KETEK [Suspect]
     Indication: SINUSITIS
     Route: 048
  3. ANTIRETROVIRAL THERAPY [Interacting]
     Indication: DRUG USE FOR UNKNOWN INDICATION
     Route: 065

REACTIONS (2)
  - DRUG INTERACTION [None]
  - STEVENS-JOHNSON SYNDROME [None]
